FAERS Safety Report 12933779 (Version 3)
Quarter: 2016Q4

REPORT INFORMATION
  Report Type: Spontaneous
  Country: ES (occurrence: ES)
  Receive Date: 20161111
  Receipt Date: 20161222
  Transmission Date: 20170207
  Serious: Yes (Other)
  Sender: FDA-Public Use
  Company Number: ES-AMGEN-ESPSP2016067284

PATIENT
  Age: 45 Year
  Sex: Male

DRUGS (14)
  1. ENBREL [Suspect]
     Active Substance: ETANERCEPT
     Dosage: 50 MG, EVERY 15 DAYS
     Route: 058
     Dates: start: 2016, end: 201609
  2. ANTALGIN [Concomitant]
     Indication: COMPLEX REGIONAL PAIN SYNDROME
     Dosage: UNK, AS NEEDED
  3. ENBREL [Suspect]
     Active Substance: ETANERCEPT
     Dosage: 1 DF, UNK (1 EVERY 2 WEEKS, ON FRIDAYS)
     Route: 058
     Dates: start: 2016
  4. ENBREL [Suspect]
     Active Substance: ETANERCEPT
     Dosage: 50 MG, WEEKLY
     Route: 065
     Dates: end: 20161007
  5. DEFLAZACORT [Concomitant]
     Active Substance: DEFLAZACORT
     Indication: COMPLEX REGIONAL PAIN SYNDROME
     Dosage: 1 TABLET ONE DAY AND HALF TABLET THE FOLLOWING DAY AND AFTER HE STARTED AGAIN
  6. ENBREL [Suspect]
     Active Substance: ETANERCEPT
     Dosage: ONE INJECTION EVERY 15 DAYS
     Route: 065
     Dates: start: 201605
  7. OSVICAL D [Concomitant]
     Indication: BLOOD CALCIUM
     Dosage: 1 ENVELOPE, 1X/DAY
  8. INEGY [Concomitant]
     Active Substance: EZETIMIBE\SIMVASTATIN
     Indication: HYPERCHOLESTEROLAEMIA
     Dosage: 1 DF, 1X/DAY (1 TABLET EVERY 24 HOURS)
  9. ENBREL [Suspect]
     Active Substance: ETANERCEPT
     Indication: RHEUMATOID ARTHRITIS
     Dosage: 50 MG, WEEKLY
     Route: 058
     Dates: start: 20160403
  10. TARGIN [Suspect]
     Active Substance: NALOXONE HYDROCHLORIDE\OXYCODONE HYDROCHLORIDE
     Indication: ANALGESIC THERAPY
     Dosage: 3 DF, 3X/DAY (1 TABLET IN THE MORNING AND TWO AT NIGHT OR 2 TABLETS IN THE MORNING AND ONE AT NIGHT)
     Route: 065
     Dates: start: 2016, end: 2016
  11. ZALDIAR [Concomitant]
     Active Substance: ACETAMINOPHEN\TRAMADOL HYDROCHLORIDE
     Indication: PAIN
     Dosage: 2 DF, DAILY
  12. SECALIP [Concomitant]
     Active Substance: FENOFIBRATE
     Indication: HYPERCHOLESTEROLAEMIA
     Dosage: 1 DF, 1X/DAY
  13. ZALDIAR [Concomitant]
     Active Substance: ACETAMINOPHEN\TRAMADOL HYDROCHLORIDE
     Indication: COMPLEX REGIONAL PAIN SYNDROME
  14. ALLOPURINOL. [Concomitant]
     Active Substance: ALLOPURINOL
     Indication: BLOOD URIC ACID INCREASED
     Dosage: 1 DF, 1X/DAY

REACTIONS (10)
  - Fatigue [Recovered/Resolved]
  - Pain in extremity [Not Recovered/Not Resolved]
  - Inflammation [Recovered/Resolved]
  - Constipation [Recovered/Resolved]
  - Anxiety [Recovered/Resolved]
  - Blood test abnormal [Unknown]
  - Insomnia [Recovered/Resolved]
  - Hepatotoxicity [Unknown]
  - Drug effect incomplete [Not Recovered/Not Resolved]
  - Transaminases increased [Unknown]

NARRATIVE: CASE EVENT DATE: 2016
